FAERS Safety Report 16873081 (Version 3)
Quarter: 2019Q4

REPORT INFORMATION
  Report Type: Spontaneous
  Country: JP (occurrence: JP)
  Receive Date: 20191001
  Receipt Date: 20191105
  Transmission Date: 20200122
  Serious: Yes (Other)
  Sender: FDA-Public Use
  Company Number: JP-EMD SERONO-9118825

PATIENT
  Age: 30 Year
  Sex: Female

DRUGS (4)
  1. FOLYRMON-P [Concomitant]
     Active Substance: GONADOTROPHIN, CHORIONIC
     Indication: PRODUCT USED FOR UNKNOWN INDICATION
     Route: 030
     Dates: start: 20190913, end: 20190915
  2. FOLYRMON-P [Concomitant]
     Active Substance: GONADOTROPHIN, CHORIONIC
     Route: 030
     Dates: start: 20190916, end: 20190919
  3. HUMAN MENOPAUSAL GONADOTROPHIN [Concomitant]
     Active Substance: GONADOTROPHIN, CHORIONIC
     Indication: PRODUCT USED FOR UNKNOWN INDICATION
     Route: 030
     Dates: start: 20190920, end: 20190921
  4. OVIDREL [Suspect]
     Active Substance: CHORIOGONADOTROPIN ALFA
     Indication: INFERTILITY
     Route: 058
     Dates: start: 20190922, end: 20190922

REACTIONS (2)
  - Needle issue [Recovered/Resolved]
  - Soft tissue foreign body [Recovered/Resolved]

NARRATIVE: CASE EVENT DATE: 20190922
